FAERS Safety Report 9844836 (Version 1)
Quarter: 2014Q1

REPORT INFORMATION
  Report Type: Spontaneous
  Country: US (occurrence: None)
  Receive Date: 20140122
  Receipt Date: 20140122
  Transmission Date: 20141002
  Serious: Yes (Other)
  Sender: FDA-Public Use
  Company Number: 2013-US-005177

PATIENT
  Age: 59 Year
  Sex: Female

DRUGS (8)
  1. ASPARAGINASE [Suspect]
     Indication: B PRECURSOR TYPE ACUTE LEUKAEMIA
  2. DOXORUBICIN (DOXORUBICIN) [Concomitant]
  3. VINCRISTINE (VINCRISTINE) [Concomitant]
  4. PREDNISONE (PREDNISONE) [Concomitant]
  5. CYTOXAN (CYCLOPHOSPHAMIDE) [Concomitant]
  6. AMLODIPINE (AMLODIPINE BESILATE) [Concomitant]
  7. ZESTRIL (LISINOPRIL) [Concomitant]
  8. WARFARIN (WARFARIN) [Concomitant]

REACTIONS (6)
  - Non-alcoholic steatohepatitis [None]
  - Cholestasis [None]
  - Cholelithiasis [None]
  - Asthenia [None]
  - Decreased appetite [None]
  - Hepatomegaly [None]
